FAERS Safety Report 6080496-2 (Version None)
Quarter: 2009Q1

REPORT INFORMATION
  Report Type: 
  Country: None (occurrence: None)
  Receive Date: 20090217
  Receipt Date: 20090210
  Transmission Date: 20090719
  Serious: Yes (Hospitalization, Congenital Anomaly)
  Sender: FDA-Public Use
  Company Number: A0680943A

PATIENT
  Sex: Female
  Weight: 3.5 kg

DRUGS (5)
  1. PAXIL [Suspect]
     Indication: DEPRESSION
     Dosage: 20MG PER DAY
  2. AFRIN [Concomitant]
  3. BENADRYL [Concomitant]
  4. VITAMIN TAB [Concomitant]
  5. TYLENOL [Concomitant]

REACTIONS (3)
  - DRUG EXPOSURE DURING PREGNANCY [None]
  - TALIPES [None]
  - TRANSIENT TACHYPNOEA OF THE NEWBORN [None]
